FAERS Safety Report 9046947 (Version 2)
Quarter: 2013Q1

REPORT INFORMATION
  Report Type: Report from Study
  Country: DE (occurrence: DE)
  Receive Date: 20130204
  Receipt Date: 20130326
  Transmission Date: 20140127
  Serious: Yes (Other)
  Sender: FDA-Public Use
  Company Number: DE-JNJFOC-20121209861

PATIENT
  Age: 58 None
  Sex: Male
  Weight: 101 kg

DRUGS (1)
  1. STELARA [Suspect]
     Indication: PSORIASIS
     Route: 058
     Dates: start: 20090924

REACTIONS (2)
  - Hepatic cirrhosis [Not Recovered/Not Resolved]
  - Weight decreased [Unknown]
